FAERS Safety Report 10061588 (Version 1)
Quarter: 2014Q2

REPORT INFORMATION
  Report Type: Spontaneous
  Country: TR (occurrence: TR)
  Receive Date: 20140407
  Receipt Date: 20140407
  Transmission Date: 20141212
  Serious: Yes (Death, Other)
  Sender: FDA-Public Use
  Company Number: TR-ACCORD-022882

PATIENT
  Age: 5 Year
  Sex: Male

DRUGS (7)
  1. ETOPOSIDE [Suspect]
     Indication: CHEMOTHERAPY
  2. METHOTREXATE [Suspect]
     Indication: CHEMOTHERAPY
     Route: 037
  3. TACROLIMUS [Suspect]
     Indication: IMMUNOSUPPRESSION
  4. DOXORUBICIN [Suspect]
     Indication: CHEMOTHERAPY
  5. CYCLOPHOSPHAMIDE/CYCLOPHOSPHAMIDE MONOHYDRATE [Suspect]
     Indication: CHEMOTHERAPY
  6. VINCRISTINE [Suspect]
     Indication: CHEMOTHERAPY
  7. PREDNISOLONE [Suspect]
     Indication: IMMUNOSUPPRESSION

REACTIONS (2)
  - Acute lymphocytic leukaemia [Unknown]
  - Sepsis [Fatal]
